FAERS Safety Report 7905107-X (Version None)
Quarter: 2011Q4

REPORT INFORMATION
  Report Type: 
  Country: None (occurrence: None)
  Receive Date: 20111109
  Receipt Date: 20111102
  Transmission Date: 20120403
  Serious: Yes (Hospitalization)
  Sender: FDA-Public Use
  Company Number: JP-B.I. PHARMACEUTICALS,INC./RIDGEFIELD-2011-BP-21267NB

PATIENT
  Age: 9 Decade
  Sex: Female

DRUGS (1)
  1. PRADAXA [Suspect]
     Dosage: 220 MG
     Route: 048
     Dates: start: 20110401, end: 20110501

REACTIONS (5)
  - MELAENA [None]
  - HAEMORRHAGE SUBCUTANEOUS [None]
  - HAEMARTHROSIS [None]
  - CARDIAC FAILURE [None]
  - RECTAL HAEMORRHAGE [None]
